FAERS Safety Report 13703379 (Version 1)
Quarter: 2017Q2

REPORT INFORMATION
  Report Type: Spontaneous
  Country: GB (occurrence: GB)
  Receive Date: 20170629
  Receipt Date: 20170629
  Transmission Date: 20170830
  Serious: Yes (Other)
  Sender: FDA-Public Use
  Company Number: GB-INCYTE CORPORATION-2017IN005161

PATIENT

DRUGS (2)
  1. JAKAVI [Suspect]
     Active Substance: RUXOLITINIB
     Dosage: 10MG MANE AND 5MG NOCTE
     Route: 065
  2. JAKAVI [Suspect]
     Active Substance: RUXOLITINIB
     Indication: CHRONIC LEUKAEMIA
     Dosage: 5 MG, BID
     Route: 065
     Dates: start: 201402

REACTIONS (6)
  - Chronic leukaemia [Unknown]
  - Urinary tract disorder [Unknown]
  - Drug ineffective [Unknown]
  - Concomitant disease aggravated [Unknown]
  - Leukaemia recurrent [Unknown]
  - Product use in unapproved indication [Unknown]
